FAERS Safety Report 5442071-X (Version None)
Quarter: 2007Q3

REPORT INFORMATION
  Report Type: 
  Country: None (occurrence: None)
  Receive Date: 20070904
  Receipt Date: 20070831
  Transmission Date: 20080115
  Serious: Yes (Death, Life-Threatening, Other)
  Sender: FDA-Public Use
  Company Number: JP-SANOFI-SYNTHELABO-F01200501691

PATIENT
  Sex: Male
  Weight: 57 kg

DRUGS (6)
  1. FLUOROURACIL INJ [Suspect]
     Dosage: 650 MG/BODY=406.3 MG/M2 IN BOLUS THEN 975 MG/BODY=609.4 MG/M2 AS CONTINUOUS INFUSION
     Route: 042
     Dates: start: 20050727, end: 20050728
  2. VENOGLOBULIN [Concomitant]
     Route: 042
     Dates: start: 20061028, end: 20061030
  3. OXALIPLATIN [Suspect]
     Indication: RECTAL CANCER
     Route: 042
     Dates: start: 20050727, end: 20050727
  4. PENTCILLIN [Concomitant]
     Route: 042
     Dates: start: 20051028, end: 20051029
  5. LEUCOVORIN CALCIUM [Suspect]
     Route: 042
     Dates: start: 20050727, end: 20050728
  6. FLOMOXEF [Concomitant]
     Route: 042
     Dates: start: 20061030, end: 20061104

REACTIONS (4)
  - LEUKOPENIA [None]
  - NEUTROPENIA [None]
  - PNEUMONIA [None]
  - THROMBOCYTOPENIA [None]
